FAERS Safety Report 25157249 (Version 2)
Quarter: 2025Q2

REPORT INFORMATION
  Report Type: Spontaneous
  Country: US (occurrence: US)
  Receive Date: 20250403
  Receipt Date: 20250425
  Transmission Date: 20250717
  Serious: No
  Sender: MERCK SHARP & DOHME LLC
  Company Number: US-009507513-2271510

PATIENT
  Sex: Male

DRUGS (1)
  1. BELSOMRA [Suspect]
     Active Substance: SUVOREXANT
     Dosage: STRENGTH: 15MG. TAKE 1 TABLET BY MOUTH EVERYDAY AT BEDTIME
     Route: 048

REACTIONS (4)
  - Product dose omission issue [Unknown]
  - Product use issue [Unknown]
  - Product packaging quantity issue [Unknown]
  - No adverse event [Unknown]
